FAERS Safety Report 17983694 (Version 1)
Quarter: 2020Q3

REPORT INFORMATION
  Report Type: Spontaneous
  Country: US (occurrence: US)
  Receive Date: 20200705
  Receipt Date: 20200705
  Transmission Date: 20201103
  Serious: No
  Sender: FDA-Public Use
  Company Number: None

PATIENT
  Sex: Female

DRUGS (1)
  1. STELARA [Suspect]
     Active Substance: USTEKINUMAB
     Indication: CROHN^S DISEASE
     Dosage: ?          OTHER FREQUENCY:EVERY 6 WEEKS;?
     Route: 058
     Dates: start: 201909

REACTIONS (6)
  - Fatigue [None]
  - Adverse drug reaction [None]
  - Back pain [None]
  - Temperature intolerance [None]
  - Arthralgia [None]
  - Alopecia [None]
